FAERS Safety Report 6402065-4 (Version None)
Quarter: 2009Q4

REPORT INFORMATION
  Report Type: 
  Country: None (occurrence: None)
  Receive Date: 20091015
  Receipt Date: 20091005
  Transmission Date: 20100525
  Serious: Yes (Hospitalization)
  Sender: FDA-Public Use
  Company Number: CA-PFIZER INC-2009278318

PATIENT
  Age: 45 Year

DRUGS (3)
  1. ZITHROMAX [Suspect]
     Dosage: 500 MG, SINGLE
     Dates: start: 20090929, end: 20090929
  2. ZITHROMAX [Suspect]
     Dosage: UNK
     Dates: start: 20090930
  3. CORTISONE [Concomitant]
     Indication: NASAL DISORDER
     Dosage: UNK

REACTIONS (1)
  - BLINDNESS [None]
